FAERS Safety Report 24581478 (Version 2)
Quarter: 2025Q2

REPORT INFORMATION
  Report Type: Spontaneous
  Country: US (occurrence: US)
  Receive Date: 20241105
  Receipt Date: 20250512
  Transmission Date: 20250717
  Serious: Yes (Other)
  Sender: ROCHE
  Company Number: US-ROCHE-10000122488

PATIENT
  Age: 75 Year
  Sex: Male

DRUGS (1)
  1. VABYSMO [Suspect]
     Active Substance: FARICIMAB-SVOA
     Indication: Neovascular age-related macular degeneration
     Route: 050
     Dates: start: 20220519

REACTIONS (2)
  - Panic attack [Recovered/Resolved]
  - Cardiac flutter [Recovering/Resolving]

NARRATIVE: CASE EVENT DATE: 20241029
